FAERS Safety Report 4799878-1 (Version None)
Quarter: 2005Q4

REPORT INFORMATION
  Report Type: 
  Country: None (occurrence: None)
  Receive Date: 20051013
  Receipt Date: 20051004
  Transmission Date: 20060501
  Serious: Yes (Other)
  Sender: FDA-Public Use
  Company Number: 2005137222

PATIENT
  Age: 63 Year
  Sex: Female
  Weight: 99.7913 kg

DRUGS (1)
  1. SUDAFED COLD AND COUGH (PARACETAMOL, PSEUDOEPHEDRINE, DEXTROMETHORPHAN [Suspect]
     Indication: NASOPHARYNGITIS
     Dosage: 1-2 LIQUIDCAPS TWICE, ORAL
     Route: 048
     Dates: start: 20051002, end: 20051002

REACTIONS (4)
  - HALLUCINATION [None]
  - RASH ERYTHEMATOUS [None]
  - RASH GENERALISED [None]
  - RASH PRURITIC [None]
